FAERS Safety Report 17229715 (Version 2)
Quarter: 2020Q1

REPORT INFORMATION
  Report Type: Report from Study
  Country: CH (occurrence: CH)
  Receive Date: 20200103
  Receipt Date: 20200107
  Transmission Date: 20200409
  Serious: Yes (Hospitalization, Other)
  Sender: FDA-Public Use
  Company Number: CH-BAYER-2019-237050

PATIENT
  Sex: Male

DRUGS (3)
  1. COPANLISIB. [Suspect]
     Active Substance: COPANLISIB
     Indication: B-CELL LYMPHOMA REFRACTORY
     Dosage: DAILY DOSE 60 MG
     Route: 042
     Dates: start: 20191209, end: 20191216
  2. ZYLORIC [Concomitant]
     Active Substance: ALLOPURINOL
     Dosage: DAILY DOSE 300 MG
     Route: 048
     Dates: start: 20191207
  3. VENETOCLAX. [Suspect]
     Active Substance: VENETOCLAX
     Indication: B-CELL LYMPHOMA REFRACTORY
     Dosage: DAILY DOSE 600 MG
     Route: 048
     Dates: start: 20191210, end: 20191222

REACTIONS (2)
  - Rash maculo-papular [None]
  - Upper respiratory tract infection [Recovered/Resolved]

NARRATIVE: CASE EVENT DATE: 20191222
